FAERS Safety Report 6484076-6 (Version None)
Quarter: 2009Q4

REPORT INFORMATION
  Report Type: 
  Country: None (occurrence: None)
  Receive Date: 20091208
  Receipt Date: 20091208
  Transmission Date: 20100525
  Serious: Yes (Life-Threatening)
  Sender: FDA-Public Use
  Company Number: None

PATIENT
  Age: 20 Year
  Sex: Male

DRUGS (2)
  1. XOLAIR [Suspect]
     Indication: ASTHMA
     Dosage: 225 MG Q2 WEEKS IM
     Route: 030
     Dates: start: 20041202, end: 20050912
  2. REMICADE [Concomitant]

REACTIONS (2)
  - CROHN'S DISEASE [None]
  - HODGKIN'S DISEASE [None]
